FAERS Safety Report 19722345 (Version 2)
Quarter: 2021Q3

REPORT INFORMATION
  Report Type: Spontaneous
  Country: US (occurrence: US)
  Receive Date: 20210819
  Receipt Date: 20210928
  Transmission Date: 20211014
  Serious: Yes (Hospitalization, Other)
  Sender: FDA-Public Use
  Company Number: US-JNJFOC-20210823279

PATIENT

DRUGS (2)
  1. XARELTO [Suspect]
     Active Substance: RIVAROXABAN
     Indication: PRODUCT USED FOR UNKNOWN INDICATION
     Route: 048
  2. APIXABAN [Suspect]
     Active Substance: APIXABAN
     Indication: PRODUCT USED FOR UNKNOWN INDICATION
     Route: 065

REACTIONS (14)
  - Drug ineffective [Unknown]
  - Injury [Unknown]
  - Urosepsis [Unknown]
  - Atrial thrombosis [Unknown]
  - Peripheral artery occlusion [Unknown]
  - Urinary tract infection [Unknown]
  - Road traffic accident [Unknown]
  - Peripheral embolism [Unknown]
  - Wheelchair user [Unknown]
  - Deep vein thrombosis [Unknown]
  - Asthenia [Recovered/Resolved]
  - Encephalopathy [Unknown]
  - Spinal cord injury [Unknown]
  - Atrial flutter [Unknown]

NARRATIVE: CASE EVENT DATE: 2015
